FAERS Safety Report 6086328-0 (Version None)
Quarter: 2009Q1

REPORT INFORMATION
  Report Type: 
  Country: None (occurrence: None)
  Receive Date: 20090220
  Receipt Date: 20090215
  Transmission Date: 20090719
  Serious: No
  Sender: FDA-Public Use
  Company Number: US-B.I. PHARMACEUTICALS,INC./RIDGEFIELD-2009-BP-00685BP

PATIENT
  Sex: Female

DRUGS (9)
  1. SPIRIVA [Suspect]
     Indication: EMPHYSEMA
     Dosage: 36MCG
     Route: 055
     Dates: start: 20081211, end: 20081230
  2. EXFORGE [Concomitant]
     Indication: HYPERTENSION
     Route: 048
     Dates: start: 20080901
  3. FOSAMAX [Concomitant]
     Indication: OSTEOPOROSIS
     Dosage: 70MG
     Route: 048
     Dates: start: 19990101
  4. PLAVIX [Concomitant]
     Indication: CAROTID ARTERY DISEASE
     Dosage: 75MG
     Route: 048
     Dates: start: 20070101
  5. SYNTHROID [Concomitant]
     Route: 048
  6. ALENDRONATE SODIUM [Concomitant]
  7. ATENOLOL [Concomitant]
  8. TRAMADO [Concomitant]
  9. HYDROCHLOROTHIAZIDE [Concomitant]

REACTIONS (3)
  - CHOKING [None]
  - DYSPHAGIA [None]
  - SALIVARY HYPERSECRETION [None]
